FAERS Safety Report 5061243-X (Version None)
Quarter: 2006Q3

REPORT INFORMATION
  Report Type: 
  Country: None (occurrence: None)
  Receive Date: 20060720
  Receipt Date: 20060708
  Transmission Date: 20061208
  Serious: Yes (Hospitalization)
  Sender: FDA-Public Use
  Company Number: 2006085015

PATIENT
  Age: 41 Year
  Sex: Female
  Weight: 55 kg

DRUGS (7)
  1. REVATIO [Suspect]
     Indication: PULMONARY HYPERTENSION
     Dosage: 37.5 MG (12.5 MG, 3 IN 1 D), ORAL
     Route: 048
     Dates: start: 20040608, end: 20060609
  2. WARFARIN SODIUM [Concomitant]
  3. OXYGEN (OXYGEN) [Concomitant]
  4. PAXIL [Concomitant]
  5. GASMOTIN (MOSAPRIDE CITRATE) [Concomitant]
  6. MEILAX (ETHYL LOFLAZEPATE) [Concomitant]
  7. BIOFERMIN R (STREPTOCOCCUS FAECALIS) [Concomitant]

REACTIONS (3)
  - ENDARTERECTOMY [None]
  - FATIGUE [None]
  - RIGHT VENTRICULAR FAILURE [None]
